FAERS Safety Report 20173846 (Version 1)
Quarter: 2021Q4

REPORT INFORMATION
  Report Type: Spontaneous
  Country: CN (occurrence: None)
  Receive Date: 20211213
  Receipt Date: 20211213
  Transmission Date: 20220303
  Serious: Yes (Hospitalization)
  Sender: FDA-Public Use
  Company Number: CN-Merck Healthcare KGaA-9285103

PATIENT
  Age: 38 Year
  Sex: Female
  Weight: 40 kg

DRUGS (3)
  1. GONAL-F [Suspect]
     Active Substance: FOLLITROPIN
     Indication: Infertility
     Route: 058
     Dates: start: 20211117, end: 20211123
  2. GONAL-F [Suspect]
     Active Substance: FOLLITROPIN
     Dosage: WITHOUT WFI 75IU
     Route: 058
     Dates: start: 20211125, end: 20211125
  3. SOMATROPIN [Suspect]
     Active Substance: SOMATROPIN
     Indication: Infertility
     Route: 058
     Dates: start: 20211117, end: 20211125

REACTIONS (3)
  - Oedema [Not Recovered/Not Resolved]
  - Dysphonia [Not Recovered/Not Resolved]
  - Dyspnoea [Not Recovered/Not Resolved]

NARRATIVE: CASE EVENT DATE: 20211125
